FAERS Safety Report 9111329 (Version 1)
Quarter: 2013Q1

REPORT INFORMATION
  Report Type: Spontaneous
  Country: US (occurrence: US)
  Receive Date: 20130219
  Receipt Date: 20130219
  Transmission Date: 20140127
  Serious: Yes (Other)
  Sender: FDA-Public Use
  Company Number: US-BRISTOL-MYERS SQUIBB COMPANY-16435349

PATIENT
  Age: 77 Year
  Sex: Female

DRUGS (15)
  1. ORENCIA [Suspect]
     Indication: RHEUMATOID ARTHRITIS
     Route: 042
     Dates: start: 20090721, end: 20120208
  2. METHOTREXATE [Concomitant]
  3. NEXIUM [Concomitant]
  4. METOPROLOL [Concomitant]
  5. FOLIC ACID [Concomitant]
  6. SYNTHROID [Concomitant]
  7. ZOLPIDEM [Concomitant]
  8. ALBUTEROL [Concomitant]
  9. HYDROCODONE [Concomitant]
  10. DILTIAZEM HCL [Concomitant]
  11. COMBIVENT [Concomitant]
  12. SINGULAIR [Concomitant]
  13. REGLAN [Concomitant]
  14. RECLAST [Concomitant]
     Dates: start: 20110823
  15. PLAVIX [Concomitant]

REACTIONS (1)
  - Mantle cell lymphoma [Unknown]
